FAERS Safety Report 4443065-3 (Version None)
Quarter: 2004Q3

REPORT INFORMATION
  Report Type: 
  Country: None (occurrence: None)
  Receive Date: 20040908
  Receipt Date: 20040831
  Transmission Date: 20050211
  Serious: Yes (Hospitalization)
  Sender: FDA-Public Use
  Company Number: US-JNJFOC-20040900883

PATIENT
  Sex: Female
  Weight: 74.84 kg

DRUGS (8)
  1. DITROPAN XL [Suspect]
     Route: 049
  2. THYROID MEDICATION [Concomitant]
  3. ASPIRIN [Concomitant]
  4. PRAVACHOL [Concomitant]
  5. PREMARIN [Concomitant]
  6. AMITRIPTYLENE [Concomitant]
  7. NORVASC [Concomitant]
  8. QUININE SULFATE [Concomitant]

REACTIONS (3)
  - BODY HEIGHT DECREASED [None]
  - CHEST PAIN [None]
  - DRUG INEFFECTIVE [None]
